APPROVED DRUG PRODUCT: TESTRED
Active Ingredient: METHYLTESTOSTERONE
Strength: 10MG
Dosage Form/Route: CAPSULE;ORAL
Application: A083976 | Product #001
Applicant: BAUSCH HEALTH US LLC
Approved: Approved Prior to Jan 1, 1982 | RLD: Yes | RS: No | Type: DISCN